FAERS Safety Report 10060643 (Version 1)
Quarter: 2014Q2

REPORT INFORMATION
  Report Type: Spontaneous
  Country: US (occurrence: US)
  Receive Date: 20140404
  Receipt Date: 20140404
  Transmission Date: 20141212
  Serious: Yes (Hospitalization)
  Sender: FDA-Public Use
  Company Number: US-B.I. PHARMACEUTICALS,INC./RIDGEFIELD-2014-BI-13226BI

PATIENT
  Age: 75 Year
  Sex: Female

DRUGS (18)
  1. GILOTRIF [Suspect]
     Indication: LUNG ADENOCARCINOMA
     Dosage: 20 MG
     Route: 065
     Dates: start: 20140207
  2. AFATINIB [Suspect]
     Indication: NON-SMALL CELL LUNG CANCER
     Dosage: DAILY DOSE: LAST DOSE: 1200 MG, 1 IN 3 WK
     Route: 042
     Dates: start: 20131003
  3. ALBUTEROL(SALBUTAMOL/SALBUTAMOL SULFATE) [Concomitant]
     Indication: WHEEZING
     Dosage: 90 MCG
     Route: 050
     Dates: start: 20120501
  4. CLARITIN-D(LORATADINE, PSEUDOEPHEDRINE SULFATE)(TABLET) [Concomitant]
     Indication: PERENNIAL ALLERGY
     Dosage: 1 ANZ
     Route: 048
     Dates: start: 20120607
  5. GABAPENTIN(GABAPENTIN) [Concomitant]
     Indication: NEUROPATHY PERIPHERAL
     Dosage: 600 MG
     Route: 048
     Dates: start: 20110815
  6. LISINOPRIL(LISINOPRIL) [Concomitant]
     Indication: HYPERTENSION
     Dosage: 10 MG
     Route: 048
     Dates: start: 20130723
  7. ASPIRIN(ASPIRIN) [Concomitant]
     Indication: FACTOR V LEIDEN MUTATION
     Dosage: 81 MG
     Route: 048
     Dates: start: 20110701
  8. ASPIRIN(ASPIRIN) [Concomitant]
     Indication: THROMBOSIS
  9. ASPIRIN(ASPIRIN) [Concomitant]
     Indication: JUGULAR VEIN THROMBOSIS
  10. TRAMADOL(TRAMADOL) [Concomitant]
     Indication: ARTHRALGIA
     Dosage: 50 MG
     Route: 048
     Dates: start: 20120126
  11. ZOLPIDEM TARTRATE(ZOLPIDEM TARTRATE) [Concomitant]
     Indication: INSOMNIA
     Dosage: 10 MG
     Route: 048
     Dates: start: 20110701
  12. ZOMETA(ZOLEDRONIC ACID) [Concomitant]
     Indication: METASTASES TO BONE
     Dosage: 4 MG
     Route: 042
     Dates: start: 20131010
  13. POTASSIUM CHLORIDE(POTASSIUM CHLORIDE) [Concomitant]
     Dosage: DAILY DOSE: 10 UNIT NOT REPORTED
     Route: 048
     Dates: start: 20120809
  14. COUMADIN(WARFARIN SODIUM) [Concomitant]
     Indication: FACTOR V LEIDEN MUTATION
     Dosage: 1 MG
     Route: 048
     Dates: start: 20110829
  15. COUMADIN(WARFARIN SODIUM) [Concomitant]
     Indication: THROMBOSIS
  16. COUMADIN(WARFARIN SODIUM) [Concomitant]
     Indication: JUGULAR VEIN THROMBOSIS
  17. HYDROCODONE/ACETAMINOPHEN(HYDROCODONE TARTRATE, PARACETAMOL)(TABLET) [Concomitant]
     Indication: TUMOUR PAIN
     Dosage: 1 ANZ
     Route: 048
     Dates: start: 20111201
  18. IBUPROFEN(IBUPROFEN)(TABLET) [Concomitant]
     Indication: PAIN
     Dosage: 1 ANZ
     Route: 048
     Dates: start: 20131205

REACTIONS (2)
  - Vomiting [Recovered/Resolved]
  - Pleural effusion [Recovered/Resolved]
